FAERS Safety Report 5520435-3 (Version None)
Quarter: 2007Q4

REPORT INFORMATION
  Report Type: 
  Country: None (occurrence: None)
  Receive Date: 20071119
  Receipt Date: 20071107
  Transmission Date: 20080405
  Serious: Yes (Other)
  Sender: FDA-Public Use
  Company Number: US-PFIZER INC-2007021011

PATIENT
  Sex: Female
  Weight: 128.8 kg

DRUGS (4)
  1. CHANTIX [Suspect]
     Indication: SMOKING CESSATION THERAPY
     Dates: start: 20070313, end: 20070317
  2. RISPERDAL [Suspect]
  3. CLONAZEPAM [Concomitant]
  4. ZOLOFT [Concomitant]
     Dates: start: 20050101

REACTIONS (4)
  - BLINDNESS [None]
  - COUGH [None]
  - PARANOIA [None]
  - VISION BLURRED [None]
